FAERS Safety Report 10024227 (Version 1)
Quarter: 2014Q1

REPORT INFORMATION
  Report Type: Spontaneous
  Country: CN (occurrence: CN)
  Receive Date: 20140320
  Receipt Date: 20140320
  Transmission Date: 20141002
  Serious: Yes (Hospitalization)
  Sender: FDA-Public Use
  Company Number: CN-ASTRAZENECA-2014SE18415

PATIENT
  Sex: Female
  Weight: 67 kg

DRUGS (6)
  1. NAROPIN [Suspect]
     Indication: LOCAL ANAESTHESIA
     Route: 065
     Dates: start: 20140129, end: 20140129
  2. YIJIEKA [Concomitant]
     Indication: ANALGESIC THERAPY
     Dates: start: 20140129, end: 20140129
  3. YIJIEKA [Concomitant]
     Indication: EPIDURAL ANAESTHESIA
     Dates: start: 20140129, end: 20140129
  4. JIALUONING [Concomitant]
     Indication: ANALGESIC THERAPY
     Dosage: 30 MG/150 ML
     Dates: start: 20140129, end: 20140129
  5. JIALUONING [Concomitant]
     Indication: EPIDURAL ANAESTHESIA
     Dosage: 30 MG/150 ML
     Dates: start: 20140129, end: 20140129
  6. LIDOCAINE [Concomitant]

REACTIONS (5)
  - Thermohypoaesthesia [Recovered/Resolved with Sequelae]
  - Areflexia [Unknown]
  - Muscular weakness [Unknown]
  - Hypoaesthesia [Recovered/Resolved with Sequelae]
  - Hypoaesthesia [Recovered/Resolved with Sequelae]
